FAERS Safety Report 10068903 (Version 2)
Quarter: 2014Q2

REPORT INFORMATION
  Report Type: Spontaneous
  Country: US (occurrence: IT)
  Receive Date: 20140409
  Receipt Date: 20140409
  Transmission Date: 20141212
  Serious: Yes (Hospitalization)
  Sender: FDA-Public Use
  Company Number: IT-FRI-1000060587

PATIENT
  Age: 54 Year
  Sex: Female

DRUGS (6)
  1. ASENAPINE [Suspect]
     Indication: BIPOLAR DISORDER
     Dosage: 20 MG
     Route: 060
     Dates: start: 201204, end: 201206
  2. ASENAPINE [Suspect]
     Dosage: 10 MG
     Route: 060
     Dates: start: 201206, end: 201207
  3. ASENAPINE [Suspect]
     Indication: BIPOLAR DISORDER
     Dosage: 20 MG
     Route: 060
     Dates: start: 201207, end: 201208
  4. DEPAKIN [Concomitant]
     Dosage: 1500 MG
     Route: 048
  5. ZOLOFT [Concomitant]
     Dosage: 50 MG
     Route: 048
  6. TAVOR [Concomitant]
     Dosage: 2.5 MG
     Route: 048

REACTIONS (4)
  - Mania [Recovered/Resolved]
  - Drug ineffective [Recovered/Resolved]
  - Insomnia [Recovered/Resolved]
  - Logorrhoea [Recovered/Resolved]
